FAERS Safety Report 5383322-X (Version None)
Quarter: 2007Q3

REPORT INFORMATION
  Report Type: 
  Country: None (occurrence: None)
  Receive Date: 20070710
  Receipt Date: 20070628
  Transmission Date: 20080115
  Serious: Yes (Other)
  Sender: FDA-Public Use
  Company Number: US-PFIZER INC-2007053256

PATIENT
  Age: 85 Year
  Sex: Male
  Weight: 65.8 kg

DRUGS (2)
  1. XANAX [Suspect]
     Route: 048
  2. ALEVE [Suspect]
     Indication: PAIN
     Route: 048

REACTIONS (4)
  - CHEST DISCOMFORT [None]
  - DISORIENTATION [None]
  - DYSPEPSIA [None]
  - FATIGUE [None]
